FAERS Safety Report 6972986-2 (Version None)
Quarter: 2010Q3

REPORT INFORMATION
  Report Type: 
  Country: None (occurrence: None)
  Receive Date: 20100909
  Receipt Date: 20100906
  Transmission Date: 20110219
  Serious: Yes (Death)
  Sender: FDA-Public Use
  Company Number: JP-EISAI INC.-E2020-07014-SPO-JP

PATIENT
  Sex: Female

DRUGS (8)
  1. ARICEPT [Suspect]
     Indication: DEMENTIA ALZHEIMER'S TYPE
     Route: 048
     Dates: start: 20080423, end: 20080430
  2. ARICEPT [Suspect]
     Route: 048
     Dates: start: 20080501, end: 20090723
  3. ARICEPT [Suspect]
     Route: 048
     Dates: start: 20090724, end: 20091007
  4. ARICEPT [Suspect]
     Route: 048
     Dates: start: 20091008, end: 20100601
  5. AMOBAN [Concomitant]
     Dates: start: 20100202
  6. GRAMALIL [Concomitant]
     Route: 048
     Dates: start: 20100501, end: 20100531
  7. SEROQUEL [Concomitant]
     Dates: start: 20100601, end: 20100607
  8. SEROQUEL [Concomitant]
     Dates: start: 20100608

REACTIONS (3)
  - DEATH [None]
  - MANIA [None]
  - URINARY INCONTINENCE [None]
